FAERS Safety Report 8813721 (Version 1)
Quarter: 2012Q4

REPORT INFORMATION
  Report Type: Report from Study
  Country: DE (occurrence: DE)
  Receive Date: 20120928
  Receipt Date: 20120928
  Transmission Date: 20130627
  Serious: Yes (Hospitalization)
  Sender: FDA-Public Use
  Company Number: DE-ROCHE-1137059

PATIENT
  Sex: Male

DRUGS (2)
  1. ROACTEMRA [Suspect]
     Indication: RHEUMATOID ARTHRITIS
     Route: 065
     Dates: start: 201105, end: 201203
  2. ROACTEMRA [Suspect]
     Route: 065
     Dates: start: 20120604

REACTIONS (2)
  - Abscess jaw [Recovered/Resolved]
  - Tooth extraction [Recovered/Resolved]
